FAERS Safety Report 8042481-0 (Version None)
Quarter: 2011Q4

REPORT INFORMATION
  Report Type: 
  Country: None (occurrence: None)
  Receive Date: 20111209
  Receipt Date: 20111021
  Transmission Date: 20120403
  Serious: Yes (Other)
  Sender: FDA-Public Use
  Company Number: 2011SP049761

PATIENT
  Age: 52 Year
  Sex: Male

DRUGS (11)
  1. VICTRELIS [Suspect]
     Indication: PRODUCT USED FOR UNKNOWN INDICATION
     Dosage: 200 MG;TID;PO
     Route: 048
     Dates: start: 20110921
  2. COLESTIPOL HYDROCHLORIDE [Concomitant]
  3. CETIRIZINE [Concomitant]
  4. HYDROXYZINE [Concomitant]
  5. LISINOPRIL [Concomitant]
  6. PEGASYS [Suspect]
     Indication: PRODUCT USED FOR UNKNOWN INDICATION
  7. LOVAZA [Concomitant]
  8. RIBAVIRIN [Suspect]
     Indication: PRODUCT USED FOR UNKNOWN INDICATION
  9. ASPIRIN [Concomitant]
  10. DOXEPIN [Concomitant]
  11. ZYRTEC [Concomitant]

REACTIONS (1)
  - ANAEMIA [None]
